FAERS Safety Report 25567096 (Version 1)
Quarter: 2025Q3

REPORT INFORMATION
  Report Type: Spontaneous
  Country: CN (occurrence: CN)
  Receive Date: 20250716
  Receipt Date: 20250716
  Transmission Date: 20251020
  Serious: Yes (Other)
  Sender: PFIZER
  Company Number: CN-PFIZER INC-202500140901

PATIENT
  Age: 59 Year
  Sex: Male

DRUGS (6)
  1. MEROPENEM [Suspect]
     Active Substance: MEROPENEM
     Indication: Anti-infective therapy
  2. ACYCLOVIR [Concomitant]
     Active Substance: ACYCLOVIR
     Indication: Antiviral treatment
     Dosage: 10 MG/KG, Q8H (ON HOSPITAL DAY 1)
     Route: 042
  3. MANNITOL [Concomitant]
     Active Substance: MANNITOL
     Indication: Brain oedema
  4. EDARAVONE [Concomitant]
     Active Substance: EDARAVONE
     Indication: Antioxidant therapy
  5. METHYLPREDNISOLONE SODIUM SUCCINATE [Concomitant]
     Active Substance: METHYLPREDNISOLONE SODIUM SUCCINATE
     Dosage: 80 MG ONCE DAILY
     Route: 042
  6. IMMUNE GLOBULIN NOS [Concomitant]
     Active Substance: IMMUNE GLOBULIN NOS
     Route: 042

REACTIONS (1)
  - Intracranial infection [Unknown]
